FAERS Safety Report 5197551-1 (Version None)
Quarter: 2006Q4

REPORT INFORMATION
  Report Type: 
  Country: None (occurrence: None)
  Receive Date: 20060926
  Receipt Date: 20060814
  Transmission Date: 20070319
  Serious: No
  Sender: FDA-Public Use
  Company Number: SP00912

PATIENT
  Age: 61 Year
  Sex: Female
  Weight: 58.9676 kg

DRUGS (7)
  1. XIFAXAN [Suspect]
     Indication: GASTROINTESTINAL DISORDER
     Dosage: 1 TABLET/TID, ORAL
     Route: 048
     Dates: start: 20060703, end: 20060707
  2. PREMARIN [Concomitant]
  3. TOPROL-XL [Concomitant]
  4. TOPAMAX (TABLETS) [Concomitant]
  5. ZOCOR [Concomitant]
  6. OXYBUTIN (TABLETS) [Concomitant]
  7. LEVOXYL [Concomitant]

REACTIONS (10)
  - AGITATION [None]
  - CHAPPED LIPS [None]
  - CHROMATURIA [None]
  - DIARRHOEA [None]
  - HEADACHE [None]
  - INSOMNIA [None]
  - LETHARGY [None]
  - LIP DRY [None]
  - MUSCULAR WEAKNESS [None]
  - MYALGIA [None]
